FAERS Safety Report 5606111-7 (Version None)
Quarter: 2008Q1

REPORT INFORMATION
  Report Type: 
  Country: None (occurrence: None)
  Receive Date: 20080129
  Receipt Date: 20080128
  Transmission Date: 20080703
  Serious: Yes (Other)
  Sender: FDA-Public Use
  Company Number: BR-BRISTOL-MYERS SQUIBB COMPANY-14056501

PATIENT
  Age: 61 Year
  Sex: Male

DRUGS (4)
  1. CYCLOPHOSPHAMIDE [Suspect]
     Indication: B-CELL LYMPHOMA
  2. DOXORUBICIN HCL [Suspect]
     Indication: B-CELL LYMPHOMA
  3. VINCRISTINE SULFATE [Suspect]
     Indication: B-CELL LYMPHOMA
  4. PREDNISONE TAB [Suspect]
     Indication: B-CELL LYMPHOMA

REACTIONS (1)
  - THROMBOCYTHAEMIA [None]
